FAERS Safety Report 18717786 (Version 1)
Quarter: 2021Q1

REPORT INFORMATION
  Report Type: Spontaneous
  Country: US (occurrence: US)
  Receive Date: 20210108
  Receipt Date: 20210108
  Transmission Date: 20210419
  Serious: No
  Sender: FDA-Public Use
  Company Number: US-MYLANLABS-2020M1101533

PATIENT
  Sex: Female
  Weight: 66 kg

DRUGS (1)
  1. ESTRADIOL VAGINAL CREAM USP [Suspect]
     Active Substance: ESTRADIOL
     Indication: PRODUCT USED FOR UNKNOWN INDICATION
     Dosage: 0.01 PERCENT, 3XW (3 TIMES/ WEEK)
     Route: 062

REACTIONS (3)
  - Product packaging issue [Unknown]
  - Product quality issue [Unknown]
  - Device difficult to use [Unknown]
